FAERS Safety Report 9265320 (Version 2)
Quarter: 2013Q2

REPORT INFORMATION
  Report Type: Spontaneous
  Country: CH (occurrence: CH)
  Receive Date: 20130501
  Receipt Date: 20130605
  Transmission Date: 20140414
  Serious: No
  Sender: FDA-Public Use
  Company Number: CH-PFIZER INC-2013131973

PATIENT
  Sex: Male

DRUGS (1)
  1. EFEXOR ER [Suspect]
     Indication: DEPRESSION
     Dosage: 150 MG, 1X/DAY

REACTIONS (1)
  - Drug level increased [Unknown]
